FAERS Safety Report 25080955 (Version 1)
Quarter: 2025Q1

REPORT INFORMATION
  Report Type: Spontaneous
  Country: FR (occurrence: FR)
  Receive Date: 20250315
  Receipt Date: 20250315
  Transmission Date: 20250409
  Serious: Yes (Hospitalization)
  Sender: AUROBINDO
  Company Number: FR-AFSSAPS-TO2025000344

PATIENT
  Age: 48 Year
  Sex: Male
  Weight: 79 kg

DRUGS (1)
  1. AMOXICILLIN [Suspect]
     Active Substance: AMOXICILLIN
     Indication: Streptococcal infection
     Dosage: 1 GRAM, 3 TIMES A DAY (1G TROIS FOIS PAR JOUR)
     Route: 048
     Dates: start: 20250203, end: 20250210

REACTIONS (1)
  - Purpura [Not Recovered/Not Resolved]

NARRATIVE: CASE EVENT DATE: 20250218
